FAERS Safety Report 9808692 (Version 4)
Quarter: 2015Q1

REPORT INFORMATION
  Report Type: Spontaneous
  Country: NL (occurrence: NL)
  Receive Date: 20140110
  Receipt Date: 20140129
  Transmission Date: 20150721
  Serious: Yes (Hospitalization)
  Sender: FDA-Public Use
  Company Number: NL-SA-2013SA131649

PATIENT
  Age: 55 Year
  Sex: Male
  Weight: 93 kg

DRUGS (3)
  1. CICLOSPORIN [Concomitant]
     Active Substance: CYCLOSPORINE
     Indication: AUTOIMMUNE DISORDER
     Route: 048
     Dates: start: 20130516, end: 20130521
  2. FLUDARABINE PHOSPHATE. [Suspect]
     Active Substance: FLUDARABINE PHOSPHATE
     Indication: ACUTE LYMPHOCYTIC LEUKAEMIA
     Route: 042
     Dates: start: 20130512
  3. CICLOSPORIN [Concomitant]
     Active Substance: CYCLOSPORINE
     Indication: AUTOIMMUNE DISORDER
     Route: 048
     Dates: start: 20130703, end: 20130717

REACTIONS (3)
  - Cholecystitis [Recovered/Resolved]
  - Haemolytic anaemia [Recovered/Resolved]
  - Vomiting [Recovered/Resolved]

NARRATIVE: CASE EVENT DATE: 20130521
